FAERS Safety Report 9608633 (Version 2)
Quarter: 2014Q1

REPORT INFORMATION
  Report Type: Spontaneous
  Country: GB (occurrence: None)
  Receive Date: 20131007
  Receipt Date: 20140131
  Transmission Date: 20141002
  Serious: Yes (Other)
  Sender: FDA-Public Use
  Company Number: AUR-APL-2013-07985

PATIENT
  Age: 55 Year
  Sex: Female
  Weight: 57 kg

DRUGS (1)
  1. NAPROXEN [Suspect]
     Indication: EPICONDYLITIS
     Route: 048
     Dates: start: 2011

REACTIONS (6)
  - Diarrhoea [None]
  - Gastritis [None]
  - Gastrooesophageal reflux disease [None]
  - Abdominal pain upper [None]
  - Insomnia [None]
  - Barrett^s oesophagus [None]
